FAERS Safety Report 13026938 (Version 1)
Quarter: 2016Q4

REPORT INFORMATION
  Report Type: Spontaneous
  Country: CN (occurrence: CN)
  Receive Date: 20161214
  Receipt Date: 20161214
  Transmission Date: 20170207
  Serious: Yes (Other)
  Sender: FDA-Public Use
  Company Number: CN-PFIZER INC-2016571594

PATIENT
  Age: 78 Year
  Sex: Female
  Weight: 50 kg

DRUGS (1)
  1. VFEND [Suspect]
     Active Substance: VORICONAZOLE
     Indication: PULMONARY MYCOSIS
     Dosage: 0.4 G, 2X/DAY
     Route: 048
     Dates: start: 20160919, end: 20160920

REACTIONS (3)
  - Blindness transient [Recovered/Resolved]
  - Productive cough [Recovered/Resolved]
  - Dizziness [Recovered/Resolved]

NARRATIVE: CASE EVENT DATE: 20160920
